FAERS Safety Report 5293927-2 (Version None)
Quarter: 2007Q2

REPORT INFORMATION
  Report Type: 
  Country: None (occurrence: None)
  Receive Date: 20070411
  Receipt Date: 20070404
  Transmission Date: 20071010
  Serious: Yes (Life-Threatening)
  Sender: FDA-Public Use
  Company Number: AT-PFIZER INC-2007027418

PATIENT
  Age: 24 Year
  Sex: Female

DRUGS (3)
  1. ZELDOX (CAPSULES) [Suspect]
     Indication: BIPOLAR DISORDER
     Route: 048
  2. LAMICTAL [Suspect]
     Indication: BIPOLAR DISORDER
  3. TRITTICO [Suspect]
     Indication: BIPOLAR DISORDER

REACTIONS (2)
  - AGGRESSION [None]
  - SUICIDAL BEHAVIOUR [None]
